FAERS Safety Report 7129703-5 (Version None)
Quarter: 2010Q4

REPORT INFORMATION
  Report Type: 
  Country: None (occurrence: None)
  Receive Date: 20101130
  Receipt Date: 20101102
  Transmission Date: 20110411
  Serious: Yes (Other)
  Sender: FDA-Public Use
  Company Number: US-AMGEN-US341701

PATIENT

DRUGS (5)
  1. ETANERCEPT [Suspect]
     Indication: JUVENILE ARTHRITIS
     Dosage: 25 MG, 2 TIMES/WK
     Route: 058
     Dates: start: 20090128
  2. METHOTREXATE SODIUM [Suspect]
     Indication: JUVENILE ARTHRITIS
     Dosage: 25 MG, QWK
     Route: 058
  3. NOVOLOG [Concomitant]
  4. NAPROXEN [Concomitant]
     Dosage: UNK UNK, BID
     Dates: start: 20081112
  5. M.V.I. [Concomitant]
     Dosage: UNK UNK, PRN
     Dates: start: 20090118

REACTIONS (1)
  - HYPERGLYCAEMIA [None]
